FAERS Safety Report 6101255-8 (Version None)
Quarter: 2009Q1

REPORT INFORMATION
  Report Type: 
  Country: None (occurrence: None)
  Receive Date: 20090227
  Receipt Date: 20080512
  Transmission Date: 20090719
  Serious: Yes (Other)
  Sender: FDA-Public Use
  Company Number: 2008S1008164

PATIENT
  Sex: Male

DRUGS (5)
  1. AMNESTEEM [Suspect]
     Dosage: ORAL
     Route: 048
     Dates: start: 20030101, end: 20030201
  2. ACCUTANE [Suspect]
     Dosage: ORAL ; ORAL ; ORAL ; ORAL
     Route: 048
     Dates: start: 20010201, end: 20010901
  3. ACCUTANE [Suspect]
     Dosage: ORAL ; ORAL ; ORAL ; ORAL
     Route: 048
     Dates: start: 20020701, end: 20021201
  4. ACCUTANE [Suspect]
     Dosage: ORAL ; ORAL ; ORAL ; ORAL
     Route: 048
     Dates: start: 20030401, end: 20030901
  5. ACCUTANE [Suspect]
     Dosage: ORAL ; ORAL ; ORAL ; ORAL
     Route: 048
     Dates: start: 20041001, end: 20050401

REACTIONS (1)
  - INFLAMMATORY BOWEL DISEASE [None]
